FAERS Safety Report 25817805 (Version 1)
Quarter: 2025Q3

REPORT INFORMATION
  Report Type: Spontaneous
  Country: US (occurrence: US)
  Receive Date: 20250918
  Receipt Date: 20250918
  Transmission Date: 20251021
  Serious: No
  Sender: ITALFARMACO SPA
  Company Number: US-ITALFARMACO SPA-2184776

PATIENT
  Age: 24 Year
  Sex: Male
  Weight: 54.4 kg

DRUGS (6)
  1. DUVYZAT [Suspect]
     Active Substance: GIVINOSTAT
     Indication: Duchenne muscular dystrophy
     Dates: start: 20250725
  2. EMFLAZA [Concomitant]
     Active Substance: DEFLAZACORT
  3. PREDNISONE [Concomitant]
     Active Substance: PREDNISONE
  4. METOPROLOL [Concomitant]
     Active Substance: METOPROLOL
  5. LOSARTAN [Concomitant]
     Active Substance: LOSARTAN
  6. EPLERENONE [Concomitant]
     Active Substance: EPLERENONE

REACTIONS (1)
  - Thrombocytopenia [Unknown]
